FAERS Safety Report 6410192-0 (Version None)
Quarter: 2009Q4

REPORT INFORMATION
  Report Type: 
  Country: None (occurrence: None)
  Receive Date: 20091022
  Receipt Date: 20091021
  Transmission Date: 20100525
  Serious: Yes (Hospitalization)
  Sender: FDA-Public Use
  Company Number: A0812730A

PATIENT
  Age: 67 Year
  Sex: Female

DRUGS (1)
  1. ALLI [Suspect]
     Route: 048
     Dates: start: 20090101, end: 20090925

REACTIONS (2)
  - MYOCARDIAL INFARCTION [None]
  - THERAPEUTIC RESPONSE UNEXPECTED [None]
